FAERS Safety Report 7279056-7 (Version None)
Quarter: 2011Q1

REPORT INFORMATION
  Report Type: 
  Country: None (occurrence: None)
  Receive Date: 20110207
  Receipt Date: 20110127
  Transmission Date: 20110831
  Serious: Yes (Death, Other)
  Sender: FDA-Public Use
  Company Number: US-CELGENEUS-163-21880-11013020

PATIENT
  Sex: Female

DRUGS (15)
  1. LEVOTHYROXINE SODIUM [Concomitant]
     Route: 065
  2. MORPHINE [Concomitant]
     Route: 065
  3. INSULIN [Concomitant]
     Route: 065
  4. FORTICAL [Concomitant]
     Route: 065
  5. DIGOXIN [Concomitant]
     Route: 065
  6. OMEPRAZOLE [Concomitant]
     Route: 065
  7. DEXAMETHASONE [Concomitant]
     Route: 065
  8. METOPROLOL TARTRATE [Concomitant]
     Route: 065
  9. REVLIMID [Suspect]
     Route: 048
     Dates: start: 20100625, end: 20100629
  10. CALCITONIN [Concomitant]
     Route: 065
  11. REVLIMID [Suspect]
     Indication: MULTIPLE MYELOMA
     Route: 048
     Dates: start: 20100201, end: 20100501
  12. MAGNESIUM OXIDE [Concomitant]
     Route: 065
  13. ZOLPIDEM [Concomitant]
     Route: 065
  14. OXYCODONE HCL AND ACETAMINOPHEN [Concomitant]
     Route: 065
  15. CHLORPHENIRAMINE MALEATE [Concomitant]
     Route: 065

REACTIONS (10)
  - ACUTE MYOCARDIAL INFARCTION [None]
  - LETHARGY [None]
  - DEATH [None]
  - RENAL FAILURE ACUTE [None]
  - CONFUSIONAL STATE [None]
  - HEPATIC FAILURE [None]
  - MUSCULOSKELETAL CHEST PAIN [None]
  - THROMBOCYTOPENIA [None]
  - MENTAL STATUS CHANGES [None]
  - APHAGIA [None]
